FAERS Safety Report 5300448-7 (Version None)
Quarter: 2007Q2

REPORT INFORMATION
  Report Type: 
  Country: None (occurrence: None)
  Receive Date: 20070418
  Receipt Date: 20070410
  Transmission Date: 20071010
  Serious: Yes (Life-Threatening, Hospitalization)
  Sender: FDA-Public Use
  Company Number: ES-AVENTIS-200711798EU

PATIENT
  Age: 82 Year
  Sex: Male

DRUGS (2)
  1. SEGURIL                            /00032601/ [Suspect]
     Indication: DRUG USE FOR UNKNOWN INDICATION
     Route: 048
     Dates: end: 20060328
  2. ALDACTONE [Suspect]
     Indication: DRUG USE FOR UNKNOWN INDICATION
     Route: 048
     Dates: end: 20060328

REACTIONS (3)
  - BLOOD UREA INCREASED [None]
  - HYPERKALAEMIA [None]
  - HYPONATRAEMIA [None]
